FAERS Safety Report 8834235 (Version 1)
Quarter: 2012Q4

REPORT INFORMATION
  Report Type: 
  Country: US (occurrence: US)
  Receive Date: 20121010
  Receipt Date: 20121010
  Transmission Date: 20130627
  Serious: No
  Sender: FDA-Public Use
  Company Number: US-009507513-1210USA002559

PATIENT
  Age: 69 Year
  Sex: Male

DRUGS (3)
  1. SAPHRIS [Suspect]
     Indication: SCHIZOPHRENIA, PARANOID TYPE
     Dosage: 5 mg, qd
     Route: 060
     Dates: start: 20120827, end: 20120925
  2. LUNESTA [Concomitant]
  3. WELLBUTRIN [Concomitant]
     Dosage: 150 mg, qd

REACTIONS (4)
  - Agitation [Unknown]
  - Insomnia [Unknown]
  - Psychiatric decompensation [Unknown]
  - Underdose [Unknown]
